FAERS Safety Report 17649278 (Version 2)
Quarter: 2020Q2

REPORT INFORMATION
  Report Type: Spontaneous
  Country: RS (occurrence: RS)
  Receive Date: 20200409
  Receipt Date: 20200416
  Transmission Date: 20200713
  Serious: Yes (Hospitalization)
  Sender: FDA-Public Use
  Company Number: RS-TEVA-2020-RS-1220754

PATIENT
  Age: 59 Year

DRUGS (2)
  1. ACETYLSALICYLIC ACID [Suspect]
     Active Substance: ASPIRIN
     Dosage: 100 MILLIGRAM DAILY;
     Route: 065
  2. CLOPIDOGREL [Suspect]
     Active Substance: CLOPIDOGREL BISULFATE
     Dosage: 150 MILLIGRAM DAILY;
     Route: 065

REACTIONS (3)
  - Puncture site haematoma [Unknown]
  - Therapeutic response increased [Unknown]
  - Abdominal pain [Unknown]
